FAERS Safety Report 20797782 (Version 1)
Quarter: 2022Q2

REPORT INFORMATION
  Report Type: Spontaneous
  Country: US (occurrence: None)
  Receive Date: 20220506
  Receipt Date: 20220506
  Transmission Date: 20220720
  Serious: No
  Sender: FDA-Public Use
  Company Number: None

PATIENT
  Sex: Male
  Weight: 87.09 kg

DRUGS (23)
  1. PROMACTA [Suspect]
     Active Substance: ELTROMBOPAG OLAMINE
     Indication: Myelodysplastic syndrome
     Dosage: FREQUENCY : DAILY;?
     Route: 048
     Dates: start: 202007
  2. PROVENTIL [Concomitant]
     Active Substance: ALBUTEROL
  3. SENNA [Concomitant]
     Active Substance: SENNA LEAF\SENNOSIDES\SENNOSIDES A AND B
  4. TRAMADOL [Concomitant]
     Active Substance: TRAMADOL
  5. TRAZODONE [Concomitant]
     Active Substance: TRAZODONE HYDROCHLORIDE
  6. AMLODIPINE [Concomitant]
     Active Substance: AMLODIPINE BESYLATE
  7. ATORVASTATIN [Concomitant]
     Active Substance: ATORVASTATIN
  8. FLONASE [Concomitant]
     Active Substance: FLUTICASONE PROPIONATE
  9. FLOVENTIL [Concomitant]
  10. GABAPENTIN [Concomitant]
     Active Substance: GABAPENTIN
  11. GLYCOLAX [Concomitant]
     Active Substance: POLYETHYLENE GLYCOL 3350
  12. LABETALOL HYDROCHLORIDE [Concomitant]
     Active Substance: LABETALOL HYDROCHLORIDE
  13. PROBIOTICS NOS [Concomitant]
     Active Substance: PROBIOTICS NOS
  14. LACTULOSE [Concomitant]
     Active Substance: LACTULOSE
  15. LORATADINE [Concomitant]
     Active Substance: LORATADINE
  16. LORAZEPAM [Concomitant]
     Active Substance: LORAZEPAM
  17. LOTRIZONE [Concomitant]
  18. VITAMINS [Concomitant]
     Active Substance: VITAMINS
  19. OLOPATADINE [Concomitant]
     Active Substance: OLOPATADINE
  20. OMEPRAZOLE [Concomitant]
     Active Substance: OMEPRAZOLE
  21. ONDANSETRON [Concomitant]
     Active Substance: ONDANSETRON
  22. OXYCODONE [Concomitant]
     Active Substance: OXYCODONE
  23. PEPCID [Concomitant]
     Active Substance: FAMOTIDINE

REACTIONS (2)
  - Fall [None]
  - Rib fracture [None]
